FAERS Safety Report 8097480-X (Version None)
Quarter: 2012Q1

REPORT INFORMATION
  Report Type: 
  Country: None (occurrence: None)
  Receive Date: 20120128
  Receipt Date: 20110705
  Transmission Date: 20120608
  Serious: No
  Sender: FDA-Public Use
  Company Number: US-ABBOTT-11P-163-0837035-00

PATIENT
  Sex: Female
  Weight: 68.554 kg

DRUGS (1)
  1. HUMIRA [Suspect]
     Indication: CROHN'S DISEASE
     Route: 058
     Dates: start: 20090101

REACTIONS (5)
  - HEADACHE [None]
  - NAUSEA [None]
  - CROHN'S DISEASE [None]
  - COGNITIVE DISORDER [None]
  - PAIN [None]
